FAERS Safety Report 6013963-8 (Version None)
Quarter: 2008Q4

REPORT INFORMATION
  Report Type: 
  Country: None (occurrence: None)
  Receive Date: 20081219
  Receipt Date: 20081211
  Transmission Date: 20090506
  Serious: Yes (Other)
  Sender: FDA-Public Use
  Company Number: US-GENENTECH-273963

PATIENT
  Age: 69 Year
  Sex: Female

DRUGS (4)
  1. AVASTIN [Suspect]
     Indication: BREAST CANCER METASTATIC
     Dosage: UNK
  2. PACLITAXEL [Concomitant]
     Indication: BREAST CANCER METASTATIC
     Dosage: UNK, 1/WEEK
  3. METFORMIN HCL [Concomitant]
     Indication: DIABETES MELLITUS
  4. PAROXETINE HCL [Concomitant]
     Indication: DEPRESSION

REACTIONS (1)
  - HEPATITIS [None]
